FAERS Safety Report 4333495-2 (Version None)
Quarter: 2004Q1

REPORT INFORMATION
  Report Type: 
  Country: None (occurrence: None)
  Receive Date: 20040325
  Receipt Date: 20040223
  Transmission Date: 20041129
  Serious: No
  Sender: FDA-Public Use
  Company Number: USA040155734

PATIENT
  Age: 80 Year
  Sex: Female

DRUGS (10)
  1. FORTEO [Suspect]
     Indication: OSTEOPOROSIS
     Dates: start: 20031101
  2. REMERON [Concomitant]
  3. MULTI-VITAMINS [Concomitant]
  4. COLD PILS (OFF BRAND FROM TARGET) [Concomitant]
  5. MAGNESIUM [Concomitant]
  6. VITAMIN C [Concomitant]
  7. VITAMIN E [Concomitant]
  8. MOTRIN [Concomitant]
  9. FOSAMAX [Concomitant]
  10. CELEBREX [Concomitant]

REACTIONS (7)
  - ABDOMINAL PAIN [None]
  - BLOOD PRESSURE INCREASED [None]
  - INJECTION SITE HAEMORRHAGE [None]
  - JOINT INJURY [None]
  - MUSCLE CRAMP [None]
  - NASOPHARYNGITIS [None]
  - PAIN IN EXTREMITY [None]
